FAERS Safety Report 9628026 (Version 1)
Quarter: 2013Q4

REPORT INFORMATION
  Report Type: Spontaneous
  Country: US (occurrence: US)
  Receive Date: 20131016
  Receipt Date: 20131016
  Transmission Date: 20140711
  Serious: No
  Sender: FDA-Public Use
  Company Number: US-TEVA-438442USA

PATIENT
  Sex: Female
  Weight: 51.76 kg

DRUGS (6)
  1. PROAIR HFA [Suspect]
     Indication: ASTHMA
  2. VALIUM [Concomitant]
  3. ATROVENT [Concomitant]
  4. VITAMINS [Concomitant]
  5. PROTONIX [Concomitant]
     Indication: GASTRIC DISORDER
  6. PROTONIX [Concomitant]
     Indication: HIATUS HERNIA

REACTIONS (5)
  - Asthma [Not Recovered/Not Resolved]
  - Headache [Not Recovered/Not Resolved]
  - Dizziness [Not Recovered/Not Resolved]
  - Drug ineffective [Not Recovered/Not Resolved]
  - Incorrect dose administered [Not Recovered/Not Resolved]
